FAERS Safety Report 19000029 (Version 2)
Quarter: 2021Q1

REPORT INFORMATION
  Report Type: Report from Study
  Country: PH (occurrence: PH)
  Receive Date: 20210311
  Receipt Date: 20210312
  Transmission Date: 20210420
  Serious: Yes (Death)
  Sender: FDA-Public Use
  Company Number: PH-EISAI MEDICAL RESEARCH-EC-2021-089415

PATIENT
  Age: 81 Year
  Sex: Female

DRUGS (1)
  1. HALAVEN [Suspect]
     Active Substance: ERIBULIN MESYLATE
     Indication: BREAST CANCER METASTATIC
     Route: 042
     Dates: start: 20210304, end: 20210304

REACTIONS (2)
  - Cardiac tamponade [Fatal]
  - Asthenia [Fatal]

NARRATIVE: CASE EVENT DATE: 20210305
